FAERS Safety Report 18668165 (Version 1)
Quarter: 2020Q4

REPORT INFORMATION
  Report Type: Spontaneous
  Country: US (occurrence: US)
  Receive Date: 20201228
  Receipt Date: 20201228
  Transmission Date: 20210114
  Serious: No
  Sender: FDA-Public Use
  Company Number: US-BAUSCH-BL-2020-036575

PATIENT
  Age: 65 Year
  Sex: Female
  Weight: 49.94 kg

DRUGS (3)
  1. LIPITOR [Concomitant]
     Active Substance: ATORVASTATIN CALCIUM
     Indication: PRODUCT USED FOR UNKNOWN INDICATION
  2. TRULANCE [Suspect]
     Active Substance: PLECANATIDE
     Indication: IRRITABLE BOWEL SYNDROME
     Route: 048
     Dates: start: 20201203, end: 20201207
  3. VITAMIN D [Concomitant]
     Active Substance: VITAMIN D NOS
     Indication: PRODUCT USED FOR UNKNOWN INDICATION

REACTIONS (3)
  - Back pain [Recovering/Resolving]
  - Chest pain [Recovering/Resolving]
  - Abdominal pain [Recovering/Resolving]

NARRATIVE: CASE EVENT DATE: 202012
